FAERS Safety Report 5813524-7 (Version None)
Quarter: 2008Q3

REPORT INFORMATION
  Report Type: 
  Country: None (occurrence: None)
  Receive Date: 20080716
  Receipt Date: 20080716
  Transmission Date: 20090109
  Serious: Yes (Other)
  Sender: FDA-Public Use
  Company Number: None

PATIENT
  Age: 49 Year
  Sex: Female

DRUGS (1)
  1. MOXIFLOXACIN HCL [Suspect]
     Dosage: SEE ABOVE

REACTIONS (5)
  - DYSPNOEA [None]
  - NAUSEA [None]
  - PRURITUS [None]
  - SWELLING [None]
  - VOMITING [None]
